FAERS Safety Report 9158220 (Version 1)
Quarter: 2013Q1

REPORT INFORMATION
  Report Type: Spontaneous
  Country: US (occurrence: US)
  Receive Date: 20130312
  Receipt Date: 20130312
  Transmission Date: 20140127
  Serious: Yes (Hospitalization)
  Sender: FDA-Public Use
  Company Number: US-BAYER-2013-028339

PATIENT
  Age: 50 Year
  Sex: Female

DRUGS (20)
  1. YAZ [Suspect]
  2. YASMIN [Suspect]
  3. OCELLA [Suspect]
  4. LOSARTAN [Concomitant]
     Dosage: 25 MG, UNK
     Route: 048
     Dates: start: 20110531
  5. PREDNISONE [Concomitant]
     Dosage: 5 MG, UNK
     Route: 048
     Dates: start: 20110607
  6. PENNSAID [Concomitant]
     Dosage: 1.5 %, UNK
     Route: 061
  7. BYSTOLIC [Concomitant]
     Dosage: 5 MG, UNK
     Route: 048
     Dates: start: 20110630
  8. OMEPRAZOLE [Concomitant]
     Dosage: 20 MG, UNK
     Route: 048
     Dates: start: 20110630
  9. TREXIMET [Concomitant]
     Indication: MIGRAINE
     Dosage: 500 MG, UNK
     Route: 048
     Dates: start: 20110713
  10. PREVACID [Concomitant]
     Dosage: 30 MG, UNK
     Route: 048
     Dates: start: 20110713
  11. SUDAFED [Concomitant]
     Dosage: 30 MG, UNK
     Route: 048
     Dates: start: 20110730
  12. COREG [Concomitant]
     Dosage: 20 MG, UNK
     Route: 048
     Dates: start: 20110730
  13. ZOFRAN [Concomitant]
     Dosage: 4 MG, UNK
     Route: 040
     Dates: start: 20110730
  14. MECLIZINE [Concomitant]
     Dosage: 25 MG, UNK
     Route: 048
     Dates: start: 20110730
  15. DECADRON [Concomitant]
     Dosage: 4 MG, UNK
     Route: 040
     Dates: start: 20110730
  16. PROVENTIL [Concomitant]
     Dosage: UNK
     Route: 002
     Dates: start: 20110730
  17. TRAMADOL [Concomitant]
     Dosage: 50 MG, UNK
     Route: 048
     Dates: start: 20110730
  18. VICODIN [Concomitant]
     Dosage: 500 MG, UNK
     Route: 048
     Dates: start: 20110814
  19. IBUPROFEN [IBUPROFEN] [Concomitant]
     Dosage: 600 MG, UNK
     Route: 048
     Dates: start: 20110814
  20. HYDRALAZINE [Concomitant]

REACTIONS (1)
  - Cerebrovascular accident [None]
